FAERS Safety Report 7082529-3 (Version None)
Quarter: 2010Q4

REPORT INFORMATION
  Report Type: 
  Country: None (occurrence: None)
  Receive Date: 20101026
  Receipt Date: 20100924
  Transmission Date: 20110411
  Serious: Yes (Other)
  Sender: FDA-Public Use
  Company Number: ACO_02384_2010

PATIENT
  Sex: Male

DRUGS (8)
  1. AMPYRA [Suspect]
     Indication: GAIT DISTURBANCE
     Dosage: (10 MG BID ORAL)
     Route: 048
     Dates: start: 20100913, end: 20100921
  2. TYSABRI [Concomitant]
  3. BACLOFEN [Concomitant]
  4. ZANAFLEX [Concomitant]
  5. BUPROPION [Concomitant]
  6. AMITRIPTYLINE HCL [Concomitant]
  7. BISOPROLOL FUMARATE [Concomitant]
  8. SIMVASTATIN [Concomitant]

REACTIONS (3)
  - ASTHENIA [None]
  - CONDITION AGGRAVATED [None]
  - GAIT DISTURBANCE [None]
